FAERS Safety Report 11819188 (Version 1)
Quarter: 2015Q4

REPORT INFORMATION
  Report Type: Spontaneous
  Country: US (occurrence: None)
  Receive Date: 20151209
  Receipt Date: 20151209
  Transmission Date: 20160305
  Serious: Yes (Other)
  Sender: FDA-Public Use
  Company Number: None

PATIENT
  Age: 60 Year
  Sex: Female
  Weight: 65.77 kg

DRUGS (12)
  1. TIMOLOL 0.05% SOL [Suspect]
     Active Substance: TIMOLOL
     Route: 047
  2. BENAZEPRIL [Concomitant]
     Active Substance: BENAZEPRIL HYDROCHLORIDE
  3. ADVAIR DISKUS [Concomitant]
     Active Substance: FLUTICASONE PROPIONATE\SALMETEROL XINAFOATE
  4. LATANOPROST OPTHALMIC SOLUTION [Suspect]
     Active Substance: LATANOPROST
     Indication: GLAUCOMA
     Dosage: 0.005% 2.5ML 1 DROP IN EACH EYE AT BEDTIME
     Route: 047
     Dates: start: 201401, end: 20151127
  5. LATANOPROST OPTHALMIC SOLUTION [Suspect]
     Active Substance: LATANOPROST
     Indication: OCULAR HYPERTENSION
     Dosage: 0.005% 2.5ML 1 DROP IN EACH EYE AT BEDTIME
     Route: 047
     Dates: start: 201401, end: 20151127
  6. LEVOTHYROXINE. [Concomitant]
     Active Substance: LEVOTHYROXINE
  7. LORATADINE. [Concomitant]
     Active Substance: LORATADINE
  8. CALCIUM [Concomitant]
     Active Substance: CALCIUM
  9. METFORMIN [Concomitant]
     Active Substance: METFORMIN HYDROCHLORIDE
  10. CENTRUM SILVER (MULTIVITAMIN) [Concomitant]
  11. IBUPROFEN. [Concomitant]
     Active Substance: IBUPROFEN
  12. CHLORPHENIRAMINE. [Concomitant]
     Active Substance: CHLORPHENIRAMINE

REACTIONS (12)
  - Rash [None]
  - Anosmia [None]
  - Discomfort [None]
  - Ageusia [None]
  - Increased viscosity of upper respiratory secretion [None]
  - Fatigue [None]
  - Mood altered [None]
  - Dizziness [None]
  - Sneezing [None]
  - Dyspnoea [None]
  - Rhinorrhoea [None]
  - Nasopharyngitis [None]

NARRATIVE: CASE EVENT DATE: 201510
